FAERS Safety Report 8366932-7 (Version None)
Quarter: 2012Q2

REPORT INFORMATION
  Report Type: 
  Country: None (occurrence: None)
  Receive Date: 20120517
  Receipt Date: 20120511
  Transmission Date: 20120825
  Serious: Yes (Hospitalization)
  Sender: FDA-Public Use
  Company Number: US-BAYER-2012-048014

PATIENT
  Age: 42 Year
  Sex: Female
  Weight: 86.168 kg

DRUGS (4)
  1. ZANTAC [Concomitant]
     Dosage: 150 MG, DAILY
  2. DROSPIRENONE AND ETHINYL ESTRADIOL [Suspect]
     Dosage: UNK
     Dates: end: 20090701
  3. YASMIN [Suspect]
  4. IBUPROFEN [Concomitant]
     Dosage: UNK UNK, PRN

REACTIONS (1)
  - PULMONARY EMBOLISM [None]
